FAERS Safety Report 4520399-5 (Version None)
Quarter: 2004Q4

REPORT INFORMATION
  Report Type: 
  Country: None (occurrence: None)
  Receive Date: 20041206
  Receipt Date: 20041206
  Transmission Date: 20050328
  Serious: Yes (Hospitalization)
  Sender: FDA-Public Use
  Company Number: None

PATIENT
  Age: 76 Year
  Sex: Male
  Weight: 63.5036 kg

DRUGS (2)
  1. AVASTIN [Suspect]
  2. TARCEVA [Suspect]

REACTIONS (12)
  - ASTHENIA [None]
  - BACK PAIN [None]
  - BLOOD PRESSURE ABNORMAL [None]
  - BUNDLE BRANCH BLOCK [None]
  - DIFFICULTY IN WALKING [None]
  - DYSPNOEA [None]
  - DYSPNOEA EXERTIONAL [None]
  - ELECTROCARDIOGRAM ST SEGMENT ABNORMAL [None]
  - ELECTROCARDIOGRAM T WAVE ABNORMAL [None]
  - NAUSEA [None]
  - VOMITING [None]
  - WEIGHT DECREASED [None]
